FAERS Safety Report 17894825 (Version 3)
Quarter: 2020Q3

REPORT INFORMATION
  Report Type: Report from Study
  Country: US (occurrence: US)
  Receive Date: 20200615
  Receipt Date: 20200710
  Transmission Date: 20201103
  Serious: No
  Sender: FDA-Public Use
  Company Number: US-SA-2020SA151487

PATIENT

DRUGS (2)
  1. DUPILUMAB [Suspect]
     Active Substance: DUPILUMAB
     Indication: OSTEOARTHRITIS
     Dosage: 300 MG, QOW
     Route: 058
     Dates: start: 20200522, end: 202006
  2. DUPILUMAB [Suspect]
     Active Substance: DUPILUMAB
     Indication: CHRONIC RHINOSINUSITIS WITH NASAL POLYPS

REACTIONS (7)
  - Myalgia [Unknown]
  - Insomnia [Unknown]
  - Feeling cold [Unknown]
  - Pain in extremity [Unknown]
  - Arthralgia [Unknown]
  - Sinus disorder [Unknown]
  - Product use in unapproved indication [Unknown]

NARRATIVE: CASE EVENT DATE: 2020
